FAERS Safety Report 22854002 (Version 3)
Quarter: 2023Q4

REPORT INFORMATION
  Report Type: Report from Study
  Country: EG (occurrence: EG)
  Receive Date: 20230823
  Receipt Date: 20231110
  Transmission Date: 20240110
  Serious: Yes (Other)
  Sender: FDA-Public Use
  Company Number: EG-002147023-NVSC2023EG181166

PATIENT
  Sex: Female

DRUGS (6)
  1. AFINITOR [Suspect]
     Active Substance: EVEROLIMUS
     Indication: Breast cancer metastatic
     Dosage: 2 DOSAGE FORM, QD
     Route: 048
     Dates: end: 20231028
  2. AFINITOR [Suspect]
     Active Substance: EVEROLIMUS
     Dosage: ONE TABLET HALF AN HOUR BEFORE BREAKFAST
     Route: 048
  3. KISQALI [Suspect]
     Active Substance: RIBOCICLIB
     Indication: Breast cancer metastatic
     Dosage: 2 TABLETS ONCE DAILY FOR 21 DAYS AND 1 WEEK OFF
     Route: 048
     Dates: start: 20230716
  4. KISQALI [Suspect]
     Active Substance: RIBOCICLIB
     Dosage: 3 TABLETS ONCE DAILY FOR 21 DAYS AND 1 WEEK OFF
     Route: 048
  5. ARIMIDEX [Concomitant]
     Active Substance: ANASTROZOLE
     Indication: Neoplasm malignant
     Dosage: UNK
     Route: 065
  6. AROMASIN [Concomitant]
     Active Substance: EXEMESTANE
     Indication: Neoplasm malignant
     Dosage: UNK
     Route: 065

REACTIONS (10)
  - Fracture [Unknown]
  - Drug dependence [Unknown]
  - Mouth ulceration [Recovered/Resolved]
  - Stomatitis [Recovered/Resolved]
  - Skin ulcer [Unknown]
  - Abdominal pain upper [Unknown]
  - Dysphagia [Unknown]
  - Neoplasm progression [Unknown]
  - Drug ineffective [Unknown]
  - Off label use [Unknown]
